FAERS Safety Report 16389280 (Version 2)
Quarter: 2019Q4

REPORT INFORMATION
  Report Type: Spontaneous
  Country: US (occurrence: US)
  Receive Date: 20190604
  Receipt Date: 20191223
  Transmission Date: 20200122
  Serious: Yes (Hospitalization, Other)
  Sender: FDA-Public Use
  Company Number: US-ABBVIE-19K-163-2791743-00

PATIENT
  Age: 60 Year
  Sex: Female
  Weight: 51.76 kg

DRUGS (2)
  1. HUMIRA [Suspect]
     Active Substance: ADALIMUMAB
     Route: 058
     Dates: start: 201803, end: 201808
  2. HUMIRA [Suspect]
     Active Substance: ADALIMUMAB
     Indication: CROHN^S DISEASE
     Route: 058
     Dates: start: 201003, end: 201803

REACTIONS (7)
  - Inflammatory marker increased [Unknown]
  - Discomfort [Unknown]
  - Mass [Unknown]
  - Neck mass [Unknown]
  - Non-Hodgkin^s lymphoma [Not Recovered/Not Resolved]
  - Intestinal obstruction [Recovered/Resolved]
  - Crohn^s disease [Not Recovered/Not Resolved]

NARRATIVE: CASE EVENT DATE: 201802
